FAERS Safety Report 23455747 (Version 1)
Quarter: 2024Q1

REPORT INFORMATION
  Report Type: Spontaneous
  Country: US (occurrence: None)
  Receive Date: 20240129
  Receipt Date: 20240129
  Transmission Date: 20240409
  Serious: No
  Sender: FDA-Public Use
  Company Number: None

PATIENT
  Age: 68 Year
  Sex: Female

DRUGS (5)
  1. METFORMIN [Suspect]
     Active Substance: METFORMIN HYDROCHLORIDE
     Indication: Type 2 diabetes mellitus
     Dates: start: 20221115, end: 20230111
  2. ALLOPURINOL [Concomitant]
     Active Substance: ALLOPURINOL
  3. ROSUVASTATIN [Concomitant]
     Active Substance: ROSUVASTATIN
  4. VITAMIN D [Concomitant]
     Active Substance: VITAMIN D NOS
  5. FISH OIL [Concomitant]
     Active Substance: FISH OIL

REACTIONS (1)
  - Chronic kidney disease [None]

NARRATIVE: CASE EVENT DATE: 20221115
